FAERS Safety Report 24053246 (Version 8)
Quarter: 2025Q4

REPORT INFORMATION
  Report Type: Spontaneous
  Country: US (occurrence: US)
  Receive Date: 20240705
  Receipt Date: 20251014
  Transmission Date: 20260117
  Serious: No
  Sender: SANOFI AVENTIS
  Company Number: US-SA-2024SA097501

PATIENT
  Age: 12 Year
  Sex: Female

DRUGS (2)
  1. DUPIXENT [Suspect]
     Active Substance: DUPILUMAB
     Indication: Eczema
     Dosage: 200 MG, QOW
     Route: 058
     Dates: start: 202402, end: 202405
  2. DUPIXENT [Suspect]
     Active Substance: DUPILUMAB
     Indication: Dermatitis atopic
     Dosage: 200 MG, QOW
     Route: 058
     Dates: start: 20240907

REACTIONS (16)
  - Contrast media allergy [Unknown]
  - Rash pruritic [Recovering/Resolving]
  - Skin fissures [Not Recovered/Not Resolved]
  - Alopecia [Recovering/Resolving]
  - Attention deficit hyperactivity disorder [Unknown]
  - Sunburn [Recovering/Resolving]
  - Skin exfoliation [Unknown]
  - Pain [Recovered/Resolved]
  - Rebound eczema [Unknown]
  - Throat irritation [Not Recovered/Not Resolved]
  - Anxiety [Unknown]
  - Dyspnoea [Unknown]
  - Rash [Unknown]
  - Injection site pain [Unknown]
  - Eczema [Unknown]
  - Inappropriate schedule of product administration [Unknown]

NARRATIVE: CASE EVENT DATE: 20240101
